FAERS Safety Report 22264068 (Version 1)
Quarter: 2023Q2

REPORT INFORMATION
  Report Type: Spontaneous
  Country: US (occurrence: US)
  Receive Date: 20230428
  Receipt Date: 20230428
  Transmission Date: 20230722
  Serious: Yes (Other)
  Sender: FDA-Public Use
  Company Number: US-LEO Pharma-351550

PATIENT
  Age: 66 Year
  Sex: Male
  Weight: 69 kg

DRUGS (2)
  1. ADBRY [Suspect]
     Active Substance: TRALOKINUMAB-LDRM
     Indication: Dermatitis atopic
     Dosage: REASON LOT NO UNKNOWN : NDC 5022-0346-02
     Route: 058
     Dates: start: 20221101, end: 20230421
  2. DEVICE [Suspect]
     Active Substance: DEVICE
     Indication: Dermatitis atopic

REACTIONS (1)
  - Swelling face [Unknown]
